FAERS Safety Report 10902660 (Version 2)
Quarter: 2016Q2

REPORT INFORMATION
  Report Type: Report from Study
  Country: US (occurrence: US)
  Receive Date: 20150310
  Receipt Date: 20160421
  Transmission Date: 20160815
  Serious: Yes (Hospitalization)
  Sender: FDA-Public Use
  Company Number: US-ACTELION-A-US2015-113169

PATIENT
  Age: 21 Year
  Sex: Male
  Weight: 77.1 kg

DRUGS (10)
  1. LASIX [Concomitant]
     Active Substance: FUROSEMIDE
     Dosage: 60 MG, UNK
  2. ATENOLOL. [Concomitant]
     Active Substance: ATENOLOL
     Dosage: 25 MG, UNK
  3. TRACLEER [Suspect]
     Active Substance: BOSENTAN
     Indication: PULMONARY ARTERIAL HYPERTENSION
     Dosage: 125 MG, BID
     Route: 048
  4. EPLERENONE. [Concomitant]
     Active Substance: EPLERENONE
     Dosage: 100 MG, BID
  5. MAGNESIUM [Concomitant]
     Active Substance: MAGNESIUM
     Dosage: 400 MG, BID
  6. POTASSIUM [Concomitant]
     Active Substance: POTASSIUM
     Dosage: 35 MEQ, UNK
  7. SYNTHROID [Concomitant]
     Active Substance: LEVOTHYROXINE SODIUM
     Dosage: 88 UNK, UNK
  8. SILDENAFIL. [Concomitant]
     Active Substance: SILDENAFIL
  9. DIURIL [Concomitant]
     Active Substance: CHLOROTHIAZIDE
     Dosage: 250 MG, BID
  10. CALCITROL [Concomitant]
     Active Substance: CALCITRIOL
     Dosage: 0.25 MCG, QOD

REACTIONS (10)
  - Impaired healing [Unknown]
  - Tachycardia [Unknown]
  - Anxiety [Unknown]
  - Hypotension [Unknown]
  - Blood potassium decreased [Unknown]
  - Palpitations [Unknown]
  - Drug dose omission [Unknown]
  - Dyspnoea [Unknown]
  - Foot fracture [Unknown]
  - Hypokalaemia [Unknown]

NARRATIVE: CASE EVENT DATE: 201502
